FAERS Safety Report 24813588 (Version 6)
Quarter: 2025Q1

REPORT INFORMATION
  Report Type: Report from Study
  Country: ES (occurrence: ES)
  Receive Date: 20250107
  Receipt Date: 20250317
  Transmission Date: 20250408
  Serious: Yes (Hospitalization, Other)
  Sender: ABBVIE
  Company Number: ES-ABBVIE-6069061

PATIENT
  Age: 84 Year
  Sex: Female

DRUGS (2)
  1. CARBIDOPA\LEVODOPA [Suspect]
     Active Substance: CARBIDOPA\LEVODOPA
     Indication: Parkinson^s disease
     Route: 050
     Dates: start: 20160322, end: 202412
  2. CARBIDOPA\LEVODOPA [Suspect]
     Active Substance: CARBIDOPA\LEVODOPA
     Route: 050
     Dates: start: 20250103

REACTIONS (10)
  - Pneumonia [Not Recovered/Not Resolved]
  - Freezing phenomenon [Not Recovered/Not Resolved]
  - Fall [Recovered/Resolved]
  - Device dislocation [Unknown]
  - Therapeutic product effect decreased [Unknown]
  - Oedema peripheral [Not Recovered/Not Resolved]
  - Rib fracture [Recovered/Resolved]
  - Musculoskeletal stiffness [Unknown]
  - On and off phenomenon [Not Recovered/Not Resolved]
  - Muscle rigidity [Unknown]

NARRATIVE: CASE EVENT DATE: 20241229
